FAERS Safety Report 18023064 (Version 2)
Quarter: 2020Q3

REPORT INFORMATION
  Report Type: Spontaneous
  Country: JP (occurrence: JP)
  Receive Date: 20200715
  Receipt Date: 20200806
  Transmission Date: 20201103
  Serious: Yes (Other)
  Sender: FDA-Public Use
  Company Number: JP-AMGEN-JPNSP2020112831

PATIENT
  Age: 76 Year
  Sex: Female
  Weight: 57 kg

DRUGS (4)
  1. PRALIA [Suspect]
     Active Substance: DENOSUMAB
     Indication: OSTEOPOROSIS
     Dosage: 60 MILLIGRAM
     Route: 058
     Dates: start: 20190723, end: 20200128
  2. OPALMON [Concomitant]
     Active Substance: LIMAPROST
     Dosage: 5 UG, TID
     Route: 065
  3. METHYCOBAL [Concomitant]
     Active Substance: METHYLCOBALAMIN
     Dosage: 500 UG, TID
     Route: 065
  4. EDIROL [Concomitant]
     Active Substance: ELDECALCITOL
     Dosage: 0.75 UG, QD
     Route: 048

REACTIONS (2)
  - Osteonecrosis of jaw [Recovered/Resolved]
  - Dental cyst [Unknown]

NARRATIVE: CASE EVENT DATE: 20191223
